FAERS Safety Report 5230208-7 (Version None)
Quarter: 2007Q1

REPORT INFORMATION
  Report Type: 
  Country: None (occurrence: None)
  Receive Date: 20070206
  Receipt Date: 20061003
  Transmission Date: 20070707
  Serious: No
  Sender: FDA-Public Use
  Company Number: US-GLAXOSMITHKLINE-A0622315A

PATIENT
  Age: 49 Year
  Sex: Male

DRUGS (3)
  1. PAXIL CR [Suspect]
     Indication: DEPRESSION
     Dosage: 25MG PER DAY
     Route: 048
     Dates: start: 20060301
  2. SKELAXIN [Concomitant]
  3. MULTI-VITAMIN [Concomitant]

REACTIONS (4)
  - CHROMATURIA [None]
  - INFLUENZA LIKE ILLNESS [None]
  - PRURITUS [None]
  - PYREXIA [None]
